FAERS Safety Report 4864792-X (Version None)
Quarter: 2005Q4

REPORT INFORMATION
  Report Type: 
  Country: None (occurrence: None)
  Receive Date: 20051222
  Receipt Date: 20050706
  Transmission Date: 20060501
  Serious: Yes (Death, Hospitalization)
  Sender: FDA-Public Use
  Company Number: US-MERCK-0507USA01026

PATIENT
  Sex: Male
  Weight: 74 kg

DRUGS (6)
  1. VIOXX [Suspect]
     Indication: ARTHRALGIA
     Route: 048
     Dates: start: 20021101, end: 20030301
  2. DIAZEPAM [Concomitant]
     Route: 065
  3. ENALAPRIL MALEATE [Concomitant]
     Route: 065
  4. COREG [Concomitant]
     Route: 065
  5. DIOVAN [Concomitant]
     Route: 065
  6. FUROSEMIDE [Concomitant]
     Route: 065

REACTIONS (12)
  - AORTIC VALVE CALCIFICATION [None]
  - CARDIAC DISORDER [None]
  - CARDIOMEGALY [None]
  - DEATH [None]
  - DIZZINESS [None]
  - DYSPNOEA [None]
  - HYPERTENSION [None]
  - INTRACARDIAC THROMBUS [None]
  - MALAISE [None]
  - MYOCARDIAL INFARCTION [None]
  - PULMONARY OEDEMA [None]
  - THROMBOSIS [None]
